FAERS Safety Report 23641440 (Version 1)
Quarter: 2024Q1

REPORT INFORMATION
  Report Type: Spontaneous
  Country: FR (occurrence: FR)
  Receive Date: 20240318
  Receipt Date: 20240318
  Transmission Date: 20240409
  Serious: Yes (Hospitalization)
  Sender: FDA-Public Use
  Company Number: FR-AFSSAPS-AN2024000268

PATIENT
  Age: 70 Year
  Sex: Female
  Weight: 63 kg

DRUGS (5)
  1. DOXORUBICIN [Suspect]
     Active Substance: DOXORUBICIN
     Indication: B-cell lymphoma
     Dosage: 67 MILLIGRAM
     Route: 042
     Dates: start: 20231204, end: 20231204
  2. PREDNISONE [Suspect]
     Active Substance: PREDNISONE
     Indication: B-cell lymphoma
     Dosage: 60 MILLIGRAM, ONCE A DAY
     Route: 048
     Dates: start: 20231204, end: 20231207
  3. CYCLOPHOSPHAMIDE [Suspect]
     Active Substance: CYCLOPHOSPHAMIDE
     Indication: B-cell lymphoma
     Dosage: 1000 MILLIGRAM
     Route: 042
     Dates: start: 20231204, end: 20231204
  4. MABTHERA [Suspect]
     Active Substance: RITUXIMAB
     Indication: B-cell lymphoma
     Dosage: 1 DOSAGE FORM
     Route: 058
     Dates: start: 20231204, end: 20231204
  5. VINCRISTINE [Suspect]
     Active Substance: VINCRISTINE
     Indication: B-cell lymphoma
     Dosage: 18 MILLIGRAM
     Route: 042
     Dates: start: 20231204, end: 20231204

REACTIONS (2)
  - Aggression [Recovered/Resolved]
  - Confusional state [Recovered/Resolved]

NARRATIVE: CASE EVENT DATE: 20240206
